FAERS Safety Report 6872378-0 (Version None)
Quarter: 2010Q3

REPORT INFORMATION
  Report Type: 
  Country: None (occurrence: None)
  Receive Date: 20100723
  Receipt Date: 20080920
  Transmission Date: 20110219
  Serious: No
  Sender: FDA-Public Use
  Company Number: US-PFIZER INC-2008079377

PATIENT
  Sex: Female
  Weight: 36.818 kg

DRUGS (5)
  1. CHANTIX [Suspect]
     Indication: SMOKING CESSATION THERAPY
     Route: 048
     Dates: start: 20080901
  2. IMITREX [Concomitant]
  3. BLACK COHOSH [Concomitant]
  4. NORTRIPTYLINE [Concomitant]
  5. MULTI-VITAMINS [Concomitant]

REACTIONS (1)
  - VOMITING [None]
